FAERS Safety Report 5900219-4 (Version None)
Quarter: 2008Q3

REPORT INFORMATION
  Report Type: 
  Country: None (occurrence: None)
  Receive Date: 20080926
  Receipt Date: 20080919
  Transmission Date: 20090109
  Serious: Yes (Hospitalization)
  Sender: FDA-Public Use
  Company Number: FR-JNJFOC-20080904514

PATIENT
  Age: 72 Year
  Sex: Male

DRUGS (15)
  1. TAVANIC [Suspect]
     Indication: PNEUMONIA
     Route: 042
  2. OFLOCET [Suspect]
     Indication: PNEUMONIA
     Route: 048
  3. RIFADIN [Suspect]
     Indication: PNEUMONIA
     Route: 048
  4. ROCEPHIN [Suspect]
     Indication: PNEUMONIA
     Route: 048
  5. FOSAMAX [Concomitant]
     Route: 048
  6. MINISINTROM [Concomitant]
     Route: 048
  7. NOVONORM [Concomitant]
     Route: 065
  8. LEXOMIL [Concomitant]
     Route: 065
  9. NEXIUM [Concomitant]
     Route: 065
  10. MYFORTIC [Concomitant]
     Route: 065
  11. CORTANCYL [Concomitant]
  12. LANTUS [Concomitant]
     Route: 065
  13. ROVAMYCINE [Concomitant]
     Route: 065
  14. LEVOTHYROX [Concomitant]
     Route: 048
  15. CACIT D3 [Concomitant]
     Route: 048

REACTIONS (3)
  - ANAEMIA [None]
  - SEPTIC SHOCK [None]
  - THROMBOCYTOPENIA [None]
